FAERS Safety Report 4378234-4 (Version None)
Quarter: 2004Q2

REPORT INFORMATION
  Report Type: 
  Country: None (occurrence: None)
  Receive Date: 20040614
  Receipt Date: 20040614
  Transmission Date: 20050107
  Serious: Yes (Hospitalization)
  Sender: FDA-Public Use
  Company Number: None

PATIENT
  Age: 76 Year
  Sex: Male

DRUGS (3)
  1. ABILIFY [Suspect]
     Dosage: 15 MG DAILY
  2. ZOLOFT [Suspect]
  3. HALDOL [Concomitant]

REACTIONS (3)
  - CATATONIA [None]
  - COMA [None]
  - VENTRICULAR EXTRASYSTOLES [None]
